FAERS Safety Report 4681207-5 (Version None)
Quarter: 2005Q2

REPORT INFORMATION
  Report Type: 
  Country: None (occurrence: None)
  Receive Date: 20050601
  Receipt Date: 20050525
  Transmission Date: 20051028
  Serious: Yes (Death)
  Sender: FDA-Public Use
  Company Number: 163-20785-04120410

PATIENT
  Age: 68 Year
  Sex: Female

DRUGS (4)
  1. THALOMID [Suspect]
     Indication: MULTIPLE MYELOMA
     Dosage: 200 MG, DAILY, ORAL
     Route: 048
     Dates: start: 20040923, end: 20041122
  2. AMITRIPTYLINE HCL [Concomitant]
  3. HYDROCHLOROTHIAZIDE [Concomitant]
  4. NARCOTIC [Concomitant]

REACTIONS (1)
  - SUDDEN DEATH [None]
